FAERS Safety Report 8512369 (Version 3)
Quarter: 2013Q2

REPORT INFORMATION
  Report Type: Spontaneous
  Country: US (occurrence: US)
  Receive Date: 20120413
  Receipt Date: 20130416
  Transmission Date: 20140414
  Serious: Yes (Other)
  Sender: FDA-Public Use
  Company Number: US-ASTRAZENECA-2011SE75851

PATIENT
  Age: 75 Year
  Sex: Male
  Weight: 99.8 kg

DRUGS (4)
  1. NEXIUM [Suspect]
     Indication: GASTROOESOPHAGEAL REFLUX DISEASE
     Route: 048
  2. PLAVIX [Concomitant]
     Indication: BLOOD PRESSURE ABNORMAL
  3. REQUIP ROPINIROLE [Concomitant]
     Indication: RESTLESS LEGS SYNDROME
  4. CENICAR [Concomitant]
     Indication: BLOOD PRESSURE ABNORMAL

REACTIONS (6)
  - Idiopathic pulmonary fibrosis [Unknown]
  - Terminal state [Unknown]
  - Gastrooesophageal reflux disease [Unknown]
  - Dyspepsia [Unknown]
  - Lung disorder [Unknown]
  - Drug dose omission [Unknown]
